FAERS Safety Report 10418522 (Version 1)
Quarter: 2014Q3

REPORT INFORMATION
  Report Type: Spontaneous
  Country: FR (occurrence: FR)
  Receive Date: 20140829
  Receipt Date: 20140829
  Transmission Date: 20150326
  Serious: Yes (Death, Other)
  Sender: FDA-Public Use
  Company Number: FR-BAXTER-2014BAX050475

PATIENT
  Age: 9 Year
  Sex: Male
  Weight: 30 kg

DRUGS (19)
  1. GLIVEC [Suspect]
     Active Substance: IMATINIB MESYLATE
     Indication: PRODUCT USED FOR UNKNOWN INDICATION
     Dosage: DAY 1, IN THE MORNING
     Route: 048
     Dates: start: 20140423, end: 20140423
  2. PLITICAN [Concomitant]
     Active Substance: ALIZAPRIDE HYDROCHLORIDE
     Indication: PREMEDICATION
     Dates: start: 20140423
  3. METHOTREXATE (METHOTREXATE SODIUM) [Suspect]
     Active Substance: METHOTREXATE SODIUM
     Indication: PRODUCT USED FOR UNKNOWN INDICATION
     Dosage: DAY 6
     Route: 037
     Dates: start: 20140428, end: 20140428
  4. CYTARABINE SANDOZ [Suspect]
     Active Substance: CYTARABINE
     Indication: PRODUCT USED FOR UNKNOWN INDICATION
     Dosage: DAY 6
     Route: 037
     Dates: start: 20140428, end: 20140428
  5. KIDROLASE [Suspect]
     Active Substance: ASPARAGINASE
     Indication: PRODUCT USED FOR UNKNOWN INDICATION
     Dosage: DAY 5
     Route: 042
     Dates: start: 20140427, end: 20140427
  6. VINCRISTINE HOSPIRA [Suspect]
     Active Substance: VINCRISTINE
     Indication: PRODUCT USED FOR UNKNOWN INDICATION
     Dosage: DAY 1
     Route: 042
     Dates: start: 20140423, end: 20140423
  7. DEXAMETHASONE MYLAN [Concomitant]
     Active Substance: DEXAMETHASONE
     Indication: PRODUCT USED FOR UNKNOWN INDICATION
     Route: 065
     Dates: start: 20140423
  8. KIDROLASE [Suspect]
     Active Substance: ASPARAGINASE
     Dosage: DAY 9
     Route: 042
     Dates: start: 20140501, end: 20140501
  9. CERUBIDINE [Suspect]
     Active Substance: DAUNORUBICIN HYDROCHLORIDE
     Dosage: DAY 9
     Route: 042
     Dates: start: 20140501, end: 20140501
  10. VINCRISTINE HOSPIRA [Suspect]
     Active Substance: VINCRISTINE
     Dosage: DAY 9
     Route: 042
     Dates: start: 20140501, end: 20140501
  11. FASTURTEC [Concomitant]
     Active Substance: RASBURICASE
     Indication: PRODUCT USED FOR UNKNOWN INDICATION
     Route: 065
  12. GADOLINIUM [Concomitant]
     Active Substance: GADOLINIUM
     Indication: NUCLEAR MAGNETIC RESONANCE IMAGING
     Route: 065
     Dates: start: 20140505
  13. ENDOXAN 1000 MG, POUDRE POUR SOLUTION INJECTABLE [Suspect]
     Active Substance: CYCLOPHOSPHAMIDE
     Indication: PRODUCT USED FOR UNKNOWN INDICATION
     Dosage: DAY 2
     Route: 042
     Dates: start: 20140424, end: 20140424
  14. SOLUPRED [Suspect]
     Active Substance: PREDNISOLONE
     Indication: PRODUCT USED FOR UNKNOWN INDICATION
     Dosage: FROM DAY 2 TO DAY 11
     Route: 048
     Dates: start: 20140424, end: 20140503
  15. PREDNISOLONE. [Suspect]
     Active Substance: PREDNISOLONE
     Indication: PRODUCT USED FOR UNKNOWN INDICATION
     Dosage: DAY 6
     Route: 037
     Dates: start: 20140428, end: 20140428
  16. BLOOD [Concomitant]
     Active Substance: WHOLE BLOOD
     Indication: PRODUCT USED FOR UNKNOWN INDICATION
     Route: 065
  17. CERUBIDINE [Suspect]
     Active Substance: DAUNORUBICIN HYDROCHLORIDE
     Indication: PRODUCT USED FOR UNKNOWN INDICATION
     Dosage: DAY 2
     Route: 042
     Dates: start: 20140424, end: 20140424
  18. UROMITEXAN 1 G/10 ML, SOLUTION INJECTABLE POUR PERFUSION EN FLACON [Suspect]
     Active Substance: MESNA
     Indication: PRODUCT USED FOR UNKNOWN INDICATION
     Dosage: H0, H4 AND H8
     Route: 065
     Dates: start: 20140424
  19. ONDANSETRON AGUETTANT [Concomitant]
     Active Substance: ONDANSETRON
     Indication: PREMEDICATION
     Route: 065
     Dates: start: 20140423

REACTIONS (3)
  - Cerebral ischaemia [Fatal]
  - Febrile bone marrow aplasia [Unknown]
  - Cerebral vasoconstriction [Fatal]

NARRATIVE: CASE EVENT DATE: 20140504
